FAERS Safety Report 5921637-4 (Version None)
Quarter: 2008Q4

REPORT INFORMATION
  Report Type: 
  Country: None (occurrence: None)
  Receive Date: 20081016
  Receipt Date: 20081016
  Transmission Date: 20090506
  Serious: Yes (Hospitalization)
  Sender: FDA-Public Use
  Company Number: None

PATIENT
  Sex: Male
  Weight: 102.5129 kg

DRUGS (12)
  1. OXALIPLATIN [Suspect]
     Indication: HEAD AND NECK CANCER
     Dosage: 294MG IV Q21 DAYS IV
     Route: 042
     Dates: start: 20081006
  2. DOCETAXEL [Suspect]
     Indication: HEAD AND NECK CANCER
     Dosage: 136MG Q21 DAYS IV
     Route: 042
     Dates: start: 20081006
  3. DEXAMETHASONE [Concomitant]
  4. NEUPOGEN [Concomitant]
  5. GABAPENTIN [Concomitant]
  6. ENSURE PLUS [Concomitant]
  7. ONDANSETRON HCL [Concomitant]
  8. SIMVASTATIN [Concomitant]
  9. TEMAZEPAM [Concomitant]
  10. TRAZODONE HCL [Concomitant]
  11. FISH OIL [Concomitant]
  12. MULTI-VITAMIN [Concomitant]

REACTIONS (6)
  - BLOOD SODIUM DECREASED [None]
  - DIARRHOEA [None]
  - NEUTROPENIA [None]
  - PLATELET COUNT DECREASED [None]
  - PYREXIA [None]
  - WHITE BLOOD CELL COUNT DECREASED [None]
